FAERS Safety Report 6752220-9 (Version None)
Quarter: 2010Q2

REPORT INFORMATION
  Report Type: 
  Country: None (occurrence: None)
  Receive Date: 20100601
  Receipt Date: 20100601
  Transmission Date: 20101027
  Serious: Yes (Hospitalization)
  Sender: FDA-Public Use
  Company Number: None

PATIENT
  Age: 87 Year
  Sex: Male
  Weight: 59.9655 kg

DRUGS (1)
  1. RECLAST [Suspect]
     Dosage: 5 MG/100 ML IV
     Route: 042
     Dates: start: 20100520

REACTIONS (4)
  - CHEST DISCOMFORT [None]
  - CONFUSIONAL STATE [None]
  - LETHARGY [None]
  - PYREXIA [None]
